FAERS Safety Report 8059104-7 (Version None)
Quarter: 2012Q1

REPORT INFORMATION
  Report Type: 
  Country: None (occurrence: None)
  Receive Date: 20120120
  Receipt Date: 20120110
  Transmission Date: 20120608
  Serious: Yes (Hospitalization)
  Sender: FDA-Public Use
  Company Number: US-JNJFOC-20110901965

PATIENT
  Sex: Male
  Weight: 57.7 kg

DRUGS (14)
  1. REMICADE [Suspect]
     Route: 042
     Dates: start: 20101116
  2. REMICADE [Suspect]
     Route: 042
     Dates: start: 20110606
  3. DIPHENHYDRAMINE HCL [Concomitant]
  4. ACETAMINOPHEN [Concomitant]
  5. REMICADE [Suspect]
     Route: 042
     Dates: start: 20110425
  6. REMICADE [Suspect]
     Route: 042
     Dates: start: 20100927
  7. REMICADE [Suspect]
     Route: 042
     Dates: start: 20110718
  8. REMICADE [Suspect]
     Indication: INFLAMMATORY BOWEL DISEASE
     Route: 042
     Dates: start: 20100913
  9. LIDOCAINE/PRILOCAINE [Concomitant]
  10. CEFPODOXIME PROXETIL [Concomitant]
  11. DOCUSATE SODIUM [Concomitant]
     Route: 048
  12. REMICADE [Suspect]
     Route: 042
     Dates: start: 20110103
  13. OXYCODONE HCL [Concomitant]
  14. METRONIDAZOLE [Concomitant]

REACTIONS (5)
  - ABDOMINAL ABSCESS [None]
  - CROHN'S DISEASE [None]
  - POSTOPERATIVE WOUND INFECTION [None]
  - LARGE INTESTINE PERFORATION [None]
  - INFECTION [None]
